FAERS Safety Report 7244070-4 (Version None)
Quarter: 2011Q1

REPORT INFORMATION
  Report Type: 
  Country: None (occurrence: None)
  Receive Date: 20110119
  Receipt Date: 20110119
  Transmission Date: 20110831
  Serious: Yes (Other)
  Sender: FDA-Public Use
  Company Number: None

PATIENT
  Age: 65 Year
  Sex: Male

DRUGS (1)
  1. ALCOHOL SWABS DUIEL [Suspect]
     Dosage: AS NEEDED PER DAY

REACTIONS (2)
  - PRODUCT QUALITY ISSUE [None]
  - INFLUENZA LIKE ILLNESS [None]
